FAERS Safety Report 9244792 (Version 1)
Quarter: 2013Q2

REPORT INFORMATION
  Report Type: Report from Study
  Country: CA (occurrence: CA)
  Receive Date: 20130422
  Receipt Date: 20130422
  Transmission Date: 20140414
  Serious: Yes (Hospitalization)
  Sender: FDA-Public Use
  Company Number: CA-JNJFOC-20130408311

PATIENT
  Age: 57 Year
  Sex: Male
  Weight: 68.04 kg

DRUGS (1)
  1. REMICADE [Suspect]
     Indication: CROHN^S DISEASE
     Route: 042
     Dates: start: 2003

REACTIONS (2)
  - Intestinal resection [Recovering/Resolving]
  - Weight decreased [Recovered/Resolved]
